FAERS Safety Report 22527896 (Version 2)
Quarter: 2023Q2

REPORT INFORMATION
  Report Type: Spontaneous
  Country: US (occurrence: US)
  Receive Date: 20230606
  Receipt Date: 20230614
  Transmission Date: 20230721
  Serious: No
  Sender: FDA-Public Use
  Company Number: US-ABBVIE-5178561

PATIENT
  Sex: Female

DRUGS (1)
  1. NIACIN [Suspect]
     Active Substance: NIACIN
     Indication: Product used for unknown indication
     Dosage: NIACIIN EXTENDED RELEASE
     Route: 048

REACTIONS (1)
  - Drug hypersensitivity [Unknown]
